FAERS Safety Report 7670106-2 (Version None)
Quarter: 2011Q3

REPORT INFORMATION
  Report Type: 
  Country: None (occurrence: None)
  Receive Date: 20110808
  Receipt Date: 20110728
  Transmission Date: 20111222
  Serious: Yes (Other)
  Sender: FDA-Public Use
  Company Number: CA-ASTRAZENECA-2011SE45379

PATIENT
  Sex: Male
  Weight: 91.6 kg

DRUGS (5)
  1. ATACAND [Suspect]
     Route: 048
  2. ASPIRIN [Concomitant]
  3. FISH OIL [Concomitant]
  4. SIMVASTATIN [Concomitant]
  5. CAVERJECT [Concomitant]

REACTIONS (11)
  - FOOD POISONING [None]
  - SYNCOPE [None]
  - HYPERLIPIDAEMIA [None]
  - DIARRHOEA [None]
  - ARTERIOSCLEROSIS CORONARY ARTERY [None]
  - HYPERTENSION [None]
  - VENTRICULAR EXTRASYSTOLES [None]
  - DYSPNOEA [None]
  - GASTRIC DISORDER [None]
  - PALPITATIONS [None]
  - CORONARY ARTERY DISEASE [None]
